FAERS Safety Report 6328905-5 (Version None)
Quarter: 2009Q3

REPORT INFORMATION
  Report Type: 
  Country: None (occurrence: None)
  Receive Date: 20090826
  Receipt Date: 20090817
  Transmission Date: 20100115
  Serious: Yes (Death, Hospitalization, Other)
  Sender: FDA-Public Use
  Company Number: GB-JNJFOC-20080205572

PATIENT
  Sex: Female
  Weight: 84 kg

DRUGS (7)
  1. INFLIXIMAB [Suspect]
     Indication: RHEUMATOID ARTHRITIS
     Dosage: 3 MG/KG
     Route: 042
  2. METHOTREXATE [Concomitant]
  3. PREDNISOLONE [Concomitant]
  4. FOLIC ACID [Concomitant]
  5. PRILOSEC [Concomitant]
  6. NAPROSYN [Concomitant]
  7. ALENDRONATE SODIUM [Concomitant]

REACTIONS (4)
  - GASTROINTESTINAL NEOPLASM [None]
  - MALIGNANT NEOPLASM OF AMPULLA OF VATER [None]
  - SEPSIS [None]
  - URINARY TRACT INFECTION [None]
